FAERS Safety Report 20650017 (Version 1)
Quarter: 2022Q1

REPORT INFORMATION
  Report Type: Spontaneous
  Country: US (occurrence: US)
  Receive Date: 20220329
  Receipt Date: 20220329
  Transmission Date: 20220423
  Serious: No
  Sender: FDA-Public Use
  Company Number: US-PFIZER INC-2021711515

PATIENT
  Age: 58 Year
  Sex: Female
  Weight: 77.11 kg

DRUGS (1)
  1. CHANTIX [Suspect]
     Active Substance: VARENICLINE TARTRATE
     Indication: Smoking cessation therapy
     Dosage: 0.5MG, DAY 1-3, TAKE 1 TABLET BY MOUTH DAILY, DAY 4-7 2 TABLETS BY MOUTH (IN MORNING AND EVENING
     Dates: start: 20210615

REACTIONS (2)
  - Poor quality product administered [Unknown]
  - Product colour issue [Unknown]
